FAERS Safety Report 6666370-9 (Version None)
Quarter: 2010Q1

REPORT INFORMATION
  Report Type: 
  Country: None (occurrence: None)
  Receive Date: 20100331
  Receipt Date: 20100319
  Transmission Date: 20100710
  Serious: Yes (Hospitalization)
  Sender: FDA-Public Use
  Company Number: CIP10000605

PATIENT
  Age: 63 Year
  Sex: Female
  Weight: 93 kg

DRUGS (19)
  1. ACTONEL [Suspect]
     Indication: OSTEOPOROSIS
     Dosage: 150 MG ONCE MONTHLY, ORAL
     Route: 048
     Dates: start: 20090829, end: 20100205
  2. ALL OTHER THERAPEUTIC PRODUCTS () [Suspect]
     Indication: OSTEOARTHRITIS
     Dosage: UNKNOWN EVERY 8 WEEKS, IV NOS
     Route: 042
     Dates: start: 20091119
  3. PAXIL (PAROXETINE HYDROCHLORODE) [Concomitant]
  4. SYNTHROID [Concomitant]
  5. ZIAC /01166101/ (BISOPROLOL FURMARATE, HYDROCHLOROTHIAZIDE) [Concomitant]
  6. METFORMIN HCL [Concomitant]
  7. AMITRIPTYLINE HYDROCHLORIDE [Concomitant]
  8. LORAZEPAM [Concomitant]
  9. ASPIRIN [Concomitant]
  10. CALCIUM (CALCIUM) [Concomitant]
  11. GINKGO BILOBA (GINKGO BILOBA) [Concomitant]
  12. OSTEO BI-FLEX (CHONDROITIN SULFATE, GLUCOSAMINE HYDROCHLORIDE) [Concomitant]
  13. ZYRTEC [Concomitant]
  14. BUPROPION HCL [Concomitant]
  15. MUTIVITAMIN /00097801/ (ASCORBIC ACID, CALCIUM PANTOTHENATE, ERGOCALCI [Concomitant]
  16. VITAMIN C /00008001/ (ASCORBIC ACID) [Concomitant]
  17. POTASSIUM GLUCONATE TAB [Concomitant]
  18. CHONDROITIN (CHONDROITIN) [Concomitant]
  19. LINSEED OIL (LINUM USITATISSIMUM SEED OIL) [Concomitant]

REACTIONS (4)
  - FALL [None]
  - FEMUR FRACTURE [None]
  - INJURY [None]
  - PATHOLOGICAL FRACTURE [None]
